FAERS Safety Report 8100014-4 (Version None)
Quarter: 2012Q1

REPORT INFORMATION
  Report Type: 
  Country: None (occurrence: None)
  Receive Date: 20120129
  Receipt Date: 20111209
  Transmission Date: 20120608
  Serious: No
  Sender: FDA-Public Use
  Company Number: US-ABBOTT-11P-163-0878747-00

PATIENT
  Age: 63 Year
  Sex: Female

DRUGS (9)
  1. HUMIRA [Suspect]
     Indication: CROHN'S DISEASE
     Dates: start: 20110929
  2. PENTASA [Concomitant]
     Indication: CROHN'S DISEASE
     Dosage: 500 MG TWO CAPSULES TID
  3. VITAMIN B COMPLEX CAP [Concomitant]
     Indication: VITAMIN SUPPLEMENTATION
     Dosage: OTC
  4. ASPIRIN [Concomitant]
     Indication: PROPHYLAXIS
     Dosage: 81MG DAILY
  5. CALCIUM [Concomitant]
     Indication: MINERAL SUPPLEMENTATION
     Dosage: OTC
  6. AMBIEN [Concomitant]
     Indication: INSOMNIA
     Dosage: AT BEDTIME
  7. ENTOCORT EC [Concomitant]
     Indication: CROHN'S DISEASE
     Dosage: 3 MG EVERY OTHER DAY
  8. INDERAL [Concomitant]
     Indication: HEART RATE IRREGULAR
     Dosage: 20 MG BID
  9. ZOLOFT [Concomitant]
     Indication: DEPRESSION
     Dosage: 100MG DAILY

REACTIONS (1)
  - INJECTION SITE ERYTHEMA [None]
